FAERS Safety Report 5780622-6 (Version None)
Quarter: 2008Q2

REPORT INFORMATION
  Report Type: 
  Country: None (occurrence: None)
  Receive Date: 20080620
  Receipt Date: 20080611
  Transmission Date: 20081010
  Serious: Yes (Hospitalization)
  Sender: FDA-Public Use
  Company Number: US-ELI_LILLY_AND_COMPANY-US200806002695

PATIENT
  Sex: Male

DRUGS (6)
  1. HUMALOG MIX 75/25 [Suspect]
  2. PLAVIX [Concomitant]
  3. ACTOS [Concomitant]
  4. VYTORIN [Concomitant]
  5. NEXIUM [Concomitant]
  6. BYETTA [Concomitant]

REACTIONS (13)
  - ARTERIAL OCCLUSIVE DISEASE [None]
  - ASTHENIA [None]
  - CARDIAC ENZYMES INCREASED [None]
  - CARDIOVASCULAR INSUFFICIENCY [None]
  - CHEST PAIN [None]
  - FATIGUE [None]
  - HYPERHIDROSIS [None]
  - NAUSEA [None]
  - NERVE COMPRESSION [None]
  - PAIN IN EXTREMITY [None]
  - STENT PLACEMENT [None]
  - WEIGHT DECREASED [None]
  - WEIGHT LOSS POOR [None]
